FAERS Safety Report 17808367 (Version 1)
Quarter: 2020Q2

REPORT INFORMATION
  Report Type: Spontaneous
  Country: RO (occurrence: RO)
  Receive Date: 20200520
  Receipt Date: 20200520
  Transmission Date: 20200714
  Serious: Yes (Other)
  Sender: FDA-Public Use
  Company Number: RO-ASTRAZENECA-2020SE64620

PATIENT
  Sex: Female

DRUGS (2)
  1. PRESTARIUM [Concomitant]
     Active Substance: PERINDOPRIL
  2. FORXIGA [Suspect]
     Active Substance: DAPAGLIFLOZIN
     Indication: TYPE 2 DIABETES MELLITUS
     Dosage: 10.0MG UNKNOWN
     Route: 048

REACTIONS (1)
  - Bladder neoplasm [Recovering/Resolving]
